FAERS Safety Report 5216711-4 (Version None)
Quarter: 2007Q1

REPORT INFORMATION
  Report Type: 
  Country: None (occurrence: None)
  Receive Date: 20061130
  Receipt Date: 20060509
  Transmission Date: 20070707
  Serious: Yes (Other)
  Sender: FDA-Public Use
  Company Number: US200605002128

PATIENT
  Sex: Male

DRUGS (3)
  1. SYMBYAX [Suspect]
     Indication: BIPOLAR DISORDER
     Dosage: 12/50MG
     Dates: start: 20051101
  2. ZYPREXA [Suspect]
     Indication: BIPOLAR DISORDER
     Dosage: SEE IMAGE
     Dates: start: 20060101
  3. ZYPREXA ZYDIS [Suspect]
     Indication: BIPOLAR DISORDER
     Dosage: 10 MG, DAILY (1/D)
     Dates: start: 20060301, end: 20060401

REACTIONS (1)
  - WEIGHT INCREASED [None]
